FAERS Safety Report 8234970-0 (Version None)
Quarter: 2012Q1

REPORT INFORMATION
  Report Type: 
  Country: None (occurrence: None)
  Receive Date: 20120326
  Receipt Date: 20120315
  Transmission Date: 20120608
  Serious: Yes (Hospitalization)
  Sender: FDA-Public Use
  Company Number: US-ACTELION-A-NJ2011-56961

PATIENT

DRUGS (8)
  1. SILDENAFIL [Concomitant]
  2. COUMADIN [Concomitant]
  3. TRACLEER [Suspect]
     Indication: PULMONARY ARTERIAL HYPERTENSION
     Dosage: UNK
     Route: 048
     Dates: start: 20020816
  4. ALDACTONE [Concomitant]
  5. POTASSIUM [Concomitant]
  6. EPOPROSTENOL SODIUM [Suspect]
     Indication: PULMONARY ARTERIAL HYPERTENSION
     Dosage: 57 NG/KG, PER MIN
     Route: 041
     Dates: start: 20110121
  7. REMODULIN [Concomitant]
  8. HYDROCHLOROTHIAZIDE [Concomitant]

REACTIONS (6)
  - DEVICE DAMAGE [None]
  - DIZZINESS [None]
  - MALAISE [None]
  - CATHETER SITE HAEMORRHAGE [None]
  - CATHETER REMOVAL [None]
  - HAEMORRHAGE SUBCUTANEOUS [None]
